FAERS Safety Report 7039680-3 (Version None)
Quarter: 2010Q4

REPORT INFORMATION
  Report Type: 
  Country: None (occurrence: None)
  Receive Date: 20101012
  Receipt Date: 20101005
  Transmission Date: 20110411
  Serious: Yes (Other)
  Sender: FDA-Public Use
  Company Number: US-B.I. PHARMACEUTICALS,INC./RIDGEFIELD-2010-BP-11198BP

PATIENT
  Sex: Female

DRUGS (4)
  1. VIRAMUNE [Suspect]
     Indication: ANTIVIRAL TREATMENT
     Dosage: 400 MG
     Route: 048
     Dates: start: 20100310, end: 20100603
  2. LAMIVUDINE AND ZIDOVUDINE [Concomitant]
     Indication: ANTIVIRAL TREATMENT
     Dosage: 2
     Route: 048
     Dates: start: 20100310, end: 20100603
  3. LAMIVUDINE AND ZIDOVUDINE [Concomitant]
     Dosage: 2
     Route: 048
     Dates: start: 20100616
  4. LOPINAIVIR AND RITONAVIR [Concomitant]
     Indication: ANTIVIRAL TREATMENT
     Dosage: 4
     Route: 048
     Dates: start: 20100616

REACTIONS (1)
  - ABORTION INDUCED [None]
